FAERS Safety Report 8711834 (Version 7)
Quarter: 2013Q3

REPORT INFORMATION
  Report Type: Spontaneous
  Country: US (occurrence: US)
  Receive Date: 20120807
  Receipt Date: 20130826
  Transmission Date: 20140515
  Serious: Yes (Hospitalization, Disabling, Other)
  Sender: FDA-Public Use
  Company Number: US-009507513-2012SP017429

PATIENT
  Sex: Female
  Weight: 68.27 kg

DRUGS (1)
  1. NUVARING [Suspect]
     Indication: CONTRACEPTION
     Dosage: UNK
     Route: 067
     Dates: start: 200911, end: 201004

REACTIONS (37)
  - Deafness unilateral [Unknown]
  - Joint injury [Unknown]
  - Pulmonary embolism [Unknown]
  - Headache [Not Recovered/Not Resolved]
  - Haemorrhagic stroke [Recovered/Resolved]
  - Transient ischaemic attack [Recovered/Resolved]
  - Deep vein thrombosis [Unknown]
  - Pain in extremity [Recovered/Resolved]
  - Local swelling [Unknown]
  - Pain in extremity [Recovered/Resolved]
  - Migraine [Not Recovered/Not Resolved]
  - Cerebral infarction [Recovered/Resolved]
  - Intracranial venous sinus thrombosis [Recovered/Resolved]
  - Anxiety [Unknown]
  - Constipation [Recovered/Resolved]
  - Colon injury [Unknown]
  - Intestinal operation [Unknown]
  - Dysfunctional uterine bleeding [Not Recovered/Not Resolved]
  - Cyst [Unknown]
  - Blood disorder [Unknown]
  - Abdominal pain lower [Unknown]
  - Endometriosis [Unknown]
  - Depression [Not Recovered/Not Resolved]
  - Vitamin D deficiency [Unknown]
  - Jugular vein thrombosis [Unknown]
  - Anticoagulation drug level below therapeutic [Not Recovered/Not Resolved]
  - Local swelling [Unknown]
  - Pain in extremity [Unknown]
  - Attention deficit/hyperactivity disorder [Unknown]
  - Urinary hesitation [Unknown]
  - Hyperlipidaemia [Not Recovered/Not Resolved]
  - Hypercoagulation [Recovering/Resolving]
  - Vaginal haemorrhage [Unknown]
  - Chlamydial infection [Unknown]
  - Alcohol poisoning [Unknown]
  - Loss of consciousness [Unknown]
  - Electroencephalogram abnormal [Unknown]
